FAERS Safety Report 22319547 (Version 2)
Quarter: 2023Q2

REPORT INFORMATION
  Report Type: Report from Study
  Country: FI (occurrence: FI)
  Receive Date: 20230515
  Receipt Date: 20230525
  Transmission Date: 20230722
  Serious: Yes (Hospitalization, Other)
  Sender: FDA-Public Use
  Company Number: FI-MYLANLABS-2023M1049133

PATIENT
  Sex: Female

DRUGS (6)
  1. CLOZAPINE [Suspect]
     Active Substance: CLOZAPINE
     Indication: Schizophrenia
     Dosage: UNK
     Route: 065
     Dates: end: 20230504
  2. CLOZAPINE [Suspect]
     Active Substance: CLOZAPINE
     Dosage: UNK
     Route: 065
     Dates: start: 202109, end: 202202
  3. CLOZAPINE [Suspect]
     Active Substance: CLOZAPINE
     Dosage: UNK (AUG-SEP 2022)
     Route: 065
     Dates: start: 2022
  4. CLOZAPINE [Suspect]
     Active Substance: CLOZAPINE
     Dosage: UNK (START DATE: -FEB-2023)
     Route: 065
     Dates: end: 20230504
  5. CLOZAPINE [Suspect]
     Active Substance: CLOZAPINE
     Dosage: 100 MILLIGRAM, QD (START DATE: MAY-2023)
     Route: 065
  6. AMISULPRIDE [Suspect]
     Active Substance: AMISULPRIDE
     Indication: Product used for unknown indication
     Dosage: 200 MILLIGRAM, BID
     Route: 065

REACTIONS (6)
  - Condition aggravated [Recovered/Resolved]
  - Neutropenia [Recovered/Resolved]
  - Schizophrenia [Unknown]
  - Influenza [Unknown]
  - Urinary incontinence [Unknown]
  - Drooling [Unknown]

NARRATIVE: CASE EVENT DATE: 20230101
